FAERS Safety Report 12785184 (Version 4)
Quarter: 2019Q4

REPORT INFORMATION
  Report Type: Spontaneous
  Country: FR (occurrence: FR)
  Receive Date: 20160927
  Receipt Date: 20191108
  Transmission Date: 20200122
  Serious: Yes (Hospitalization, Other)
  Sender: FDA-Public Use
  Company Number: FR-009507513-1607FRA010296

PATIENT
  Age: 2 Year
  Sex: Male
  Weight: 15 kg

DRUGS (5)
  1. ZERBAXA [Suspect]
     Active Substance: CEFTOLOZANE SULFATE\TAZOBACTAM SODIUM
     Dosage: 500 MILLIGRAM, TID
     Route: 042
     Dates: start: 201606, end: 201609
  2. COUMADIN [Concomitant]
     Active Substance: WARFARIN SODIUM
     Dosage: 4 MG/DAY
  3. ZERBAXA [Suspect]
     Active Substance: CEFTOLOZANE SULFATE\TAZOBACTAM SODIUM
     Indication: PSEUDOMONAL BACTERAEMIA
     Dosage: 400 MILLIGRAM, TID
     Route: 042
     Dates: start: 201603, end: 201604
  4. ZERBAXA [Suspect]
     Active Substance: CEFTOLOZANE SULFATE\TAZOBACTAM SODIUM
     Dosage: 500 MILLIGRAM, TID
     Route: 042
     Dates: start: 201610, end: 201701
  5. PROGRAF [Concomitant]
     Active Substance: TACROLIMUS
     Indication: IMMUNOSUPPRESSANT DRUG THERAPY
     Dosage: 0.2 MG, BID

REACTIONS (4)
  - Clostridium difficile infection [Recovering/Resolving]
  - Pathogen resistance [Unknown]
  - Off label use [Unknown]
  - Treatment failure [Unknown]

NARRATIVE: CASE EVENT DATE: 2016
